FAERS Safety Report 9439001 (Version 1)
Quarter: 2013Q3

REPORT INFORMATION
  Report Type: Spontaneous
  Country: GB (occurrence: GB)
  Receive Date: 20130802
  Receipt Date: 20130802
  Transmission Date: 20140515
  Serious: Yes (Death, Other)
  Sender: FDA-Public Use
  Company Number: GB-PFIZER INC-2008031918

PATIENT
  Age: 58 Year
  Sex: Male
  Weight: 72 kg

DRUGS (4)
  1. CHAMPIX [Suspect]
     Indication: SMOKING CESSATION THERAPY
     Dosage: 500 UG 1X/DAY
     Dates: start: 20080206, end: 20080208
  2. CHAMPIX [Suspect]
     Dosage: 500 UG, 2X/DAY
     Dates: start: 20080209, end: 20080212
  3. CHAMPIX [Suspect]
     Dosage: 1 MG, 2X/DAY
     Dates: start: 20080213
  4. OMEPRAZOLE [Concomitant]
     Indication: GASTROOESOPHAGEAL REFLUX DISEASE
     Dosage: 20 MG, 1X/DAY
     Route: 048
     Dates: start: 20080205

REACTIONS (16)
  - Completed suicide [Fatal]
  - Accidental death [Fatal]
  - Psychotic disorder [Fatal]
  - Brain hypoxia [Fatal]
  - Cardiac arrest [Fatal]
  - Aggression [Unknown]
  - Cardiomegaly [Unknown]
  - Cardiac ventricular disorder [Unknown]
  - Arteriosclerosis coronary artery [Unknown]
  - Granulomatous liver disease [Unknown]
  - Erectile dysfunction [Not Recovered/Not Resolved]
  - Vomiting [Unknown]
  - Sleep disorder [Not Recovered/Not Resolved]
  - Headache [Unknown]
  - Nausea [Not Recovered/Not Resolved]
  - Abnormal behaviour [Unknown]
